FAERS Safety Report 4323185-4 (Version None)
Quarter: 2004Q1

REPORT INFORMATION
  Report Type: 
  Country: None (occurrence: None)
  Receive Date: 20040322
  Receipt Date: 20040306
  Transmission Date: 20041129
  Serious: Yes (Other)
  Sender: FDA-Public Use
  Company Number: 2004004616

PATIENT
  Sex: Male

DRUGS (2)
  1. VIAGRA [Suspect]
     Indication: ILL-DEFINED DISORDER
     Dosage: 100 MG ORAL
     Route: 048
  2. LISINOPRIL [Suspect]
     Indication: ILL-DEFINED DISORDER
     Dosage: 20 MG

REACTIONS (4)
  - BLOOD PRESSURE DECREASED [None]
  - DIZZINESS [None]
  - LOSS OF CONSCIOUSNESS [None]
  - PULSE ABSENT [None]
